FAERS Safety Report 9632257 (Version 1)
Quarter: 2013Q4

REPORT INFORMATION
  Report Type: Spontaneous
  Country: GB (occurrence: GB)
  Receive Date: 20131018
  Receipt Date: 20131018
  Transmission Date: 20140711
  Serious: Yes (Disabling)
  Sender: FDA-Public Use
  Company Number: GB-JNJFOC-20131008209

PATIENT
  Age: 42 Year
  Sex: Female
  Weight: 79.2 kg

DRUGS (1)
  1. STELARA [Suspect]
     Indication: PSORIASIS
     Route: 058
     Dates: start: 20130530, end: 20130628

REACTIONS (1)
  - Migraine [Not Recovered/Not Resolved]
